FAERS Safety Report 5487621-2 (Version None)
Quarter: 2007Q4

REPORT INFORMATION
  Report Type: 
  Country: None (occurrence: None)
  Receive Date: 20071017
  Receipt Date: 20071015
  Transmission Date: 20080405
  Serious: Yes (Other)
  Sender: FDA-Public Use
  Company Number: DE-NOVOPROD-265122

PATIENT

DRUGS (3)
  1. NOVORAPID PENFILL [Suspect]
     Indication: DRUG USE FOR UNKNOWN INDICATION
  2. PROTAPHANE PENFILL [Suspect]
     Indication: DRUG USE FOR UNKNOWN INDICATION
  3. PROTAPHANE PENFILL [Suspect]

REACTIONS (1)
  - INJECTION SITE INFECTION [None]
